FAERS Safety Report 7983446-4 (Version None)
Quarter: 2011Q4

REPORT INFORMATION
  Report Type: 
  Country: None (occurrence: None)
  Receive Date: 20111215
  Receipt Date: 20110729
  Transmission Date: 20120403
  Serious: No
  Sender: FDA-Public Use
  Company Number: US-BAYER-2011-070714

PATIENT
  Sex: Female

DRUGS (1)
  1. FINACEA [Suspect]
     Indication: ACNE
     Dosage: UNK
     Dates: start: 20090101

REACTIONS (3)
  - SKIN DISCOLOURATION [None]
  - SKIN BURNING SENSATION [None]
  - PIGMENTATION DISORDER [None]
